FAERS Safety Report 7178086-3 (Version None)
Quarter: 2010Q4

REPORT INFORMATION
  Report Type: 
  Country: None (occurrence: None)
  Receive Date: 20101220
  Receipt Date: 20101214
  Transmission Date: 20110411
  Serious: Yes (Other)
  Sender: FDA-Public Use
  Company Number: A0899720A

PATIENT
  Age: 41 Year
  Sex: Female

DRUGS (8)
  1. LAMICTAL [Suspect]
     Indication: MIGRAINE
     Dosage: 300MG AT NIGHT
     Route: 048
     Dates: start: 20100401
  2. LAMOTRIGINE [Suspect]
     Indication: MIGRAINE
     Dosage: 200MG PER DAY
     Route: 048
  3. ZOMIG [Concomitant]
  4. EFFEXOR XR [Concomitant]
  5. WELLBUTRIN SR [Concomitant]
  6. NEURONTIN [Concomitant]
  7. SINGULAIR [Concomitant]
  8. ENJUVIA [Concomitant]
     Indication: HORMONE REPLACEMENT THERAPY

REACTIONS (6)
  - DRUG INEFFECTIVE [None]
  - IMPAIRED DRIVING ABILITY [None]
  - LOSS OF CONSCIOUSNESS [None]
  - MIGRAINE [None]
  - OFF LABEL USE [None]
  - PERFORMANCE STATUS DECREASED [None]
